FAERS Safety Report 24421598 (Version 8)
Quarter: 2025Q1

REPORT INFORMATION
  Report Type: Report from Study
  Country: CA (occurrence: CA)
  Receive Date: 20241010
  Receipt Date: 20250314
  Transmission Date: 20250409
  Serious: Yes (Other)
  Sender: JOHNSON AND JOHNSON
  Company Number: CA-JNJFOC-20240533291

PATIENT
  Age: 34 Year
  Sex: Male

DRUGS (3)
  1. SIMPONI [Suspect]
     Active Substance: GOLIMUMAB
     Indication: Ankylosing spondylitis
     Route: 058
     Dates: start: 20230805
  2. SIMPONI [Suspect]
     Active Substance: GOLIMUMAB
     Route: 058
     Dates: start: 20230805
  3. SIMPONI [Suspect]
     Active Substance: GOLIMUMAB
     Dosage: JN2027
     Route: 058
     Dates: start: 20230805

REACTIONS (7)
  - Medical procedure [Unknown]
  - Ankylosing spondylitis [Unknown]
  - Inappropriate schedule of product administration [Unknown]
  - Wound infection [Unknown]
  - Wound [Not Recovered/Not Resolved]
  - Respiratory disorder [Unknown]
  - Deep brain stimulation [Unknown]

NARRATIVE: CASE EVENT DATE: 20240427
